FAERS Safety Report 7339681-1 (Version None)
Quarter: 2011Q1

REPORT INFORMATION
  Report Type: 
  Country: None (occurrence: None)
  Receive Date: 20110309
  Receipt Date: 20110224
  Transmission Date: 20110831
  Serious: Yes (Hospitalization, Other)
  Sender: FDA-Public Use
  Company Number: US-SHIRE-SPV1-2011-00328

PATIENT
  Sex: Female
  Weight: 119.73 kg

DRUGS (18)
  1. CARAFATE [Concomitant]
     Indication: GASTROOESOPHAGEAL REFLUX DISEASE
     Dosage: UNK UNK, UNKNOWN
     Route: 048
  2. WELLBUTRIN [Concomitant]
     Indication: DEPRESSION
     Dosage: UNK, UNKNOWN
  3. POTASSIUM [Concomitant]
     Indication: MINERAL SUPPLEMENTATION
     Dosage: UNK UNK, UNKNOWN
     Route: 048
  4. BUSPAR [Concomitant]
     Indication: ANXIETY
     Dosage: UNK, UNKNOWN
     Route: 048
  5. CELEXA [Concomitant]
     Indication: DEPRESSION
     Dosage: UNK UNK, UNKNOWN
     Route: 048
  6. FERROUS SULFATE TAB [Concomitant]
     Indication: ANAEMIA
     Dosage: UNK UNK, UNKNOWN
     Route: 048
  7. LASIX [Concomitant]
     Indication: DIURETIC THERAPY
     Dosage: UNK UNK, UNKNOWN
     Route: 048
  8. PRILOSEC [Concomitant]
     Indication: GASTROOESOPHAGEAL REFLUX DISEASE
     Dosage: UNK UNK, UNKNOWN
     Route: 048
  9. REGLAN [Concomitant]
     Indication: GASTROINTESTINAL DISORDER
     Dosage: UNK UNK, UNKNOWN
     Route: 048
  10. FLONASE [Concomitant]
     Indication: NASAL CONGESTION
     Dosage: UNK UNK, UNKNOWN
     Route: 045
  11. SPIRIVA [Concomitant]
     Indication: CHRONIC OBSTRUCTIVE PULMONARY DISEASE
     Dosage: UNK, UNKNOWN
     Route: 055
  12. ADDERALL XR 10 [Suspect]
     Indication: ATTENTION DEFICIT/HYPERACTIVITY DISORDER
     Dosage: UNK, 1X/DAY:QD
     Route: 048
     Dates: start: 20040101, end: 20060101
  13. ADDERALL XR 10 [Suspect]
     Dosage: 20 MG, 1X/DAY:QD
     Route: 048
     Dates: start: 20080101
  14. PRILOSEC [Concomitant]
     Indication: BARRETT'S OESOPHAGUS
  15. VERAPAMIL [Concomitant]
     Indication: HYPERTENSION
     Dosage: UNK UNK, UNKNOWN
     Route: 048
  16. ABILIFY [Concomitant]
     Indication: DEPRESSION
     Dosage: UNK UNK, UNKNOWN
     Route: 048
  17. CARAFATE [Concomitant]
     Indication: BARRETT'S OESOPHAGUS
  18. CALCIUM WITH VITAMIN D             /00944201/ [Concomitant]
     Indication: BONE DISORDER
     Dosage: UNK UNK, UNKNOWN
     Route: 048

REACTIONS (7)
  - ANAEMIA [None]
  - HIP ARTHROPLASTY [None]
  - OEDEMA PERIPHERAL [None]
  - KNEE ARTHROPLASTY [None]
  - ARTHRALGIA [None]
  - JOINT SWELLING [None]
  - PAIN IN EXTREMITY [None]
